FAERS Safety Report 9845848 (Version 2)
Quarter: 2014Q2

REPORT INFORMATION
  Report Type: Spontaneous
  Country: US (occurrence: US)
  Receive Date: 20140127
  Receipt Date: 20140522
  Transmission Date: 20141212
  Serious: Yes (Death, Other)
  Sender: FDA-Public Use
  Company Number: PHEH2014US001736

PATIENT
  Sex: Female

DRUGS (11)
  1. CLOZARIL [Suspect]
     Indication: PSYCHOTIC DISORDER
     Dosage: UNK
     Dates: start: 1995
  2. CLOZARIL [Suspect]
     Indication: SCHIZOAFFECTIVE DISORDER
     Dosage: 300 MG, QD (PER DAY)
  3. CLOZARIL [Suspect]
     Indication: TARDIVE DYSKINESIA
  4. SEROQUEL [Concomitant]
     Dosage: 200 MG PER DAY
     Dates: start: 20130507
  5. CELEXA [Concomitant]
     Dosage: 20 MG, TAKE ONE
     Dates: start: 20100324
  6. CELEXA [Concomitant]
     Dosage: 30 MG, PER DAY
  7. COLACE [Concomitant]
     Dosage: 100 MG, TID
     Dates: start: 20080423
  8. CLONAZEPAM [Concomitant]
     Dosage: UNK
     Dates: start: 1997
  9. CLONAZEPAM [Concomitant]
     Dosage: 4 MG, PER DAY
  10. CLONAZEPAM [Concomitant]
     Dosage: 1 MG, ONE IN AM AND TWO
     Dates: start: 20070116
  11. CLONAZEPAM [Concomitant]
     Dosage: 3 MG, PER DAY
     Dates: start: 2007

REACTIONS (13)
  - Death [Fatal]
  - Hyperlipidaemia [Unknown]
  - Paranoia [Unknown]
  - Diabetes mellitus [Unknown]
  - Migraine [Unknown]
  - Sleep disorder [Unknown]
  - Malaise [Unknown]
  - Anxiety [Unknown]
  - Hallucination [Unknown]
  - Hypertension [Unknown]
  - Headache [Unknown]
  - Constipation [Unknown]
  - Blood triglycerides increased [Unknown]
